FAERS Safety Report 23088244 (Version 1)
Quarter: 2023Q4

REPORT INFORMATION
  Report Type: Spontaneous
  Country: BR (occurrence: BR)
  Receive Date: 20231020
  Receipt Date: 20231020
  Transmission Date: 20240109
  Serious: Yes (Other)
  Sender: FDA-Public Use
  Company Number: BR-BRISTOL-MYERS SQUIBB COMPANY-2023-149453

PATIENT
  Age: 33 Year
  Sex: Female
  Weight: 61.5 kg

DRUGS (1)
  1. REVLIMID [Suspect]
     Active Substance: LENALIDOMIDE
     Indication: Plasma cell myeloma
     Dosage: 10MG ONCE DAILY FOR 28 DAYS CONSECUTIVELY
     Route: 048
     Dates: start: 202301

REACTIONS (2)
  - Premature menopause [Not Recovered/Not Resolved]
  - Infertility female [Not Recovered/Not Resolved]
